FAERS Safety Report 25116041 (Version 3)
Quarter: 2025Q3

REPORT INFORMATION
  Report Type: Report from Study
  Country: US (occurrence: US)
  Receive Date: 20250325
  Receipt Date: 20250924
  Transmission Date: 20251020
  Serious: Yes (Hospitalization)
  Sender: ABBVIE
  Company Number: US-ABBVIE-6188401

PATIENT
  Age: 60 Year
  Sex: Male

DRUGS (2)
  1. SKYRIZI [Suspect]
     Active Substance: RISANKIZUMAB-RZAA
     Indication: Crohn^s disease
     Route: 058
  2. SKYRIZI [Suspect]
     Active Substance: RISANKIZUMAB-RZAA
     Route: 058
     Dates: start: 20250315

REACTIONS (8)
  - Diarrhoea haemorrhagic [Recovered/Resolved]
  - Pyrexia [Unknown]
  - Haematochezia [Unknown]
  - Therapeutic response shortened [Unknown]
  - Diarrhoea haemorrhagic [Unknown]
  - Condition aggravated [Not Recovered/Not Resolved]
  - False positive tuberculosis test [Unknown]
  - Pulmonary mass [Unknown]

NARRATIVE: CASE EVENT DATE: 20230101
